FAERS Safety Report 20961162 (Version 2)
Quarter: 2022Q3

REPORT INFORMATION
  Report Type: Report from Study
  Country: CA (occurrence: CA)
  Receive Date: 20220615
  Receipt Date: 20220706
  Transmission Date: 20221026
  Serious: Yes (Hospitalization)
  Sender: FDA-Public Use
  Company Number: CA-ALNYLAM PHARMACEUTICALS, INC.-ALN-2022-001827

PATIENT

DRUGS (19)
  1. ONPATTRO [Suspect]
     Active Substance: PATISIRAN SODIUM
     Indication: Hereditary neuropathic amyloidosis
     Dosage: 0.3 MILLIGRAM/KILOGRAM, Q3W
     Route: 042
     Dates: start: 20200428
  2. ONPATTRO [Suspect]
     Active Substance: PATISIRAN SODIUM
     Indication: Polyneuropathy
  3. DEXAMETHASONE [Concomitant]
     Active Substance: DEXAMETHASONE
     Indication: Prophylaxis
     Dosage: 10 MILLIGRAM
     Route: 048
     Dates: start: 20210506
  4. ACETAMINOPHEN [Concomitant]
     Active Substance: ACETAMINOPHEN
     Indication: Prophylaxis
     Dosage: 500 MILLIGRAM
     Route: 048
     Dates: start: 20200428
  5. DIPHENHYDRAMINE [Concomitant]
     Active Substance: DIPHENHYDRAMINE
     Indication: Prophylaxis
     Dosage: 50 MILLIGRAM
     Route: 048
     Dates: start: 20210506
  6. FAMOTIDINE [Concomitant]
     Active Substance: FAMOTIDINE
     Indication: Prophylaxis
     Dosage: 40 MILLIGRAM
     Route: 048
     Dates: start: 20220407
  7. CIMETIDINE [Concomitant]
     Active Substance: CIMETIDINE
     Indication: Prophylaxis
     Dosage: 600 MILLIGRAM
     Route: 048
  8. VITAMIN A [Concomitant]
     Active Substance: VITAMIN A
     Indication: Prophylaxis
     Dosage: 10000 INTERNATIONAL UNIT, QD
     Route: 048
     Dates: start: 20200415
  9. METOCLOPRAMIDE [Concomitant]
     Active Substance: METOCLOPRAMIDE
     Indication: Prophylaxis
     Dosage: 5 MILLIGRAM, PRN
     Route: 048
  10. METOCLOPRAMIDE [Concomitant]
     Active Substance: METOCLOPRAMIDE
     Indication: Prophylaxis of nausea and vomiting
  11. IMODIUM [Concomitant]
     Active Substance: LOPERAMIDE HYDROCHLORIDE
     Indication: Product used for unknown indication
     Dosage: UNK
     Route: 065
  12. VITAMIN D3 [Concomitant]
     Active Substance: CHOLECALCIFEROL
     Indication: Product used for unknown indication
     Dosage: 1000 INTERNATIONAL UNIT, QD
     Route: 048
  13. CALCIUM CARBONATE [Concomitant]
     Active Substance: CALCIUM CARBONATE
     Indication: Product used for unknown indication
     Dosage: 500 INTERNATIONAL UNIT, QD
     Route: 048
  14. MIDODRINE [Concomitant]
     Active Substance: MIDODRINE
     Indication: Product used for unknown indication
     Dosage: 2.5 MILLIGRAM, TID
     Route: 048
  15. METAMUCIL [Concomitant]
     Active Substance: PLANTAGO SEED
     Indication: Constipation
     Dosage: UNK, BID
     Route: 065
  16. GABAPENTIN [Concomitant]
     Active Substance: GABAPENTIN
     Indication: Product used for unknown indication
     Dosage: 400 MILLIGRAM, BID
     Route: 048
  17. XARELTO [Concomitant]
     Active Substance: RIVAROXABAN
     Indication: Product used for unknown indication
     Dosage: 20 MILLIGRAM, QD
     Route: 048
  18. FUROSEMIDE [Concomitant]
     Active Substance: FUROSEMIDE
     Indication: Product used for unknown indication
     Dosage: 20 MILLIGRAM, QD
     Route: 048
  19. TAFAMIDIS [Concomitant]
     Active Substance: TAFAMIDIS
     Indication: Product used for unknown indication
     Dosage: 61 MILLIGRAM, QD
     Route: 048

REACTIONS (4)
  - Fluid retention [Recovered/Resolved]
  - Blood pressure systolic increased [Unknown]
  - Dyspnoea [Recovered/Resolved]
  - Infected skin ulcer [Recovering/Resolving]

NARRATIVE: CASE EVENT DATE: 20220519
